FAERS Safety Report 4871971-4 (Version None)
Quarter: 2006Q1

REPORT INFORMATION
  Report Type: 
  Country: None (occurrence: None)
  Receive Date: 20060104
  Receipt Date: 20051130
  Transmission Date: 20060701
  Serious: Yes (Hospitalization)
  Sender: FDA-Public Use
  Company Number: JP-ROCHE-426929

PATIENT
  Sex: Male
  Weight: 2.3 kg

DRUGS (1)
  1. ALL-TRANS-RETINOIC ACID [Suspect]
     Dosage: DIVIDED INTO 2 DOSES

REACTIONS (5)
  - CAESAREAN SECTION [None]
  - DRUG EXPOSURE DURING PREGNANCY [None]
  - NEONATAL RESPIRATORY DISTRESS SYNDROME [None]
  - PREGNANCY [None]
  - PREMATURE BABY [None]
